FAERS Safety Report 10193774 (Version 1)
Quarter: 2014Q2

REPORT INFORMATION
  Report Type: Spontaneous
  Country: US (occurrence: US)
  Receive Date: 20140524
  Receipt Date: 20140524
  Transmission Date: 20141212
  Serious: No
  Sender: FDA-Public Use
  Company Number: US-SANOFI-AVENTIS-2013SA043400

PATIENT
  Sex: Female

DRUGS (4)
  1. LANTUS SOLOSTAR [Suspect]
  2. SOLOSTAR [Suspect]
  3. HUMALOG [Suspect]
  4. DRUG USED IN DIABETES [Suspect]

REACTIONS (1)
  - Headache [Unknown]
